FAERS Safety Report 9239127 (Version 2)
Quarter: 2013Q2

REPORT INFORMATION
  Report Type: Spontaneous
  Country: CA (occurrence: CA)
  Receive Date: 20130418
  Receipt Date: 20130522
  Transmission Date: 20140414
  Serious: No
  Sender: FDA-Public Use
  Company Number: CA-PFIZER INC-2013117174

PATIENT
  Age: 48 Year
  Sex: Female

DRUGS (2)
  1. TORISEL [Suspect]
     Dosage: 25 MG, WEEKLY
     Dates: start: 201303
  2. HEPARIN [Concomitant]
     Dosage: UNK
     Route: 042

REACTIONS (1)
  - No adverse event [Unknown]
